FAERS Safety Report 15368753 (Version 2)
Quarter: 2018Q3

REPORT INFORMATION
  Report Type: Report from Study
  Country: None (occurrence: CA)
  Receive Date: 20180911
  Receipt Date: 20180924
  Transmission Date: 20181010
  Serious: Yes (Other)
  Sender: FDA-Public Use
  Company Number: CA-ABBVIE-18K-028-2280596-00

PATIENT
  Sex: Female

DRUGS (4)
  1. HUMIRA [Suspect]
     Active Substance: ADALIMUMAB
     Route: 058
     Dates: start: 2018
  2. DILAUDID [Concomitant]
     Active Substance: HYDROMORPHONE HYDROCHLORIDE
     Indication: PAIN
  3. HUMIRA [Suspect]
     Active Substance: ADALIMUMAB
     Indication: CROHN^S DISEASE
     Route: 058
     Dates: start: 20171120, end: 201807
  4. CANNABIS [Suspect]
     Active Substance: CANNABIS SATIVA SUBSP. INDICA TOP
     Indication: PRODUCT USED FOR UNKNOWN INDICATION
     Route: 065

REACTIONS (16)
  - Feeling abnormal [Unknown]
  - Injection site urticaria [Unknown]
  - Nausea [Unknown]
  - Bipolar II disorder [Not Recovered/Not Resolved]
  - Fatigue [Not Recovered/Not Resolved]
  - Injection site bruising [Unknown]
  - Injection site pain [Unknown]
  - Somnolence [Unknown]
  - Gastrointestinal pain [Not Recovered/Not Resolved]
  - Weight gain poor [Unknown]
  - Malnutrition [Unknown]
  - Feeling abnormal [Unknown]
  - Incorrect route of drug administration [Unknown]
  - Injection site extravasation [Unknown]
  - Muscle injury [Unknown]
  - Underweight [Unknown]

NARRATIVE: CASE EVENT DATE: 2018
